FAERS Safety Report 14682427 (Version 1)
Quarter: 2018Q1

REPORT INFORMATION
  Report Type: Report from Study
  Country: FR (occurrence: FR)
  Receive Date: 20180326
  Receipt Date: 20180326
  Transmission Date: 20180509
  Serious: Yes (Hospitalization, Other)
  Sender: FDA-Public Use
  Company Number: FR-B.I. PHARMACEUTICALS,INC./RIDGEFIELD-2018-BI-014044

PATIENT
  Age: 73 Year
  Sex: Female
  Weight: 68.3 kg

DRUGS (4)
  1. NINTEDANIB [Suspect]
     Active Substance: NINTEDANIB
     Indication: SOFT TISSUE SARCOMA
     Dosage: DOSE GIVEN AT LAST ADMINISTRATION BEFORE SAE ONSET: 200 MG
     Route: 048
     Dates: start: 20171213, end: 20180322
  2. FEOL [Concomitant]
     Indication: ANAEMIA
     Route: 048
     Dates: start: 2016
  3. VITAMIN B12 [Concomitant]
     Active Substance: CYANOCOBALAMIN
     Indication: ANAEMIA
     Route: 048
     Dates: start: 2016
  4. FOSAVANCE [Concomitant]
     Active Substance: ALENDRONATE SODIUM\CHOLECALCIFEROL
     Indication: ANAEMIA
     Route: 048
     Dates: start: 2016

REACTIONS (1)
  - Anaemia [Not Recovered/Not Resolved]

NARRATIVE: CASE EVENT DATE: 20180306
